FAERS Safety Report 6901440-9 (Version None)
Quarter: 2010Q3

REPORT INFORMATION
  Report Type: 
  Country: None (occurrence: None)
  Receive Date: 20100803
  Receipt Date: 20080129
  Transmission Date: 20110219
  Serious: Yes (Other)
  Sender: FDA-Public Use
  Company Number: US-PFIZER INC-2008009935

PATIENT
  Sex: Male
  Weight: 90.7 kg

DRUGS (2)
  1. LYRICA [Suspect]
     Indication: PAIN MANAGEMENT
     Route: 048
     Dates: start: 20071001, end: 20080123
  2. BENADRYL [Suspect]
     Indication: URTICARIA
     Dates: start: 20080101

REACTIONS (3)
  - OEDEMA MOUTH [None]
  - SWELLING FACE [None]
  - URTICARIA [None]
